FAERS Safety Report 6763646-1 (Version None)
Quarter: 2010Q2

REPORT INFORMATION
  Report Type: 
  Country: None (occurrence: None)
  Receive Date: 20100610
  Receipt Date: 20100528
  Transmission Date: 20101027
  Serious: Yes (Hospitalization)
  Sender: FDA-Public Use
  Company Number: FR-SANOFI-AVENTIS-2010SA030908

PATIENT
  Age: 41 Year
  Sex: Male

DRUGS (6)
  1. IMOVANE [Suspect]
     Indication: INSOMNIA
     Route: 048
  2. LASIX [Suspect]
     Indication: DRUG USE FOR UNKNOWN INDICATION
     Route: 048
     Dates: start: 20080227
  3. METHADONE [Suspect]
     Route: 048
  4. ATARAX [Suspect]
     Indication: ANXIETY
     Route: 048
  5. PREVISCAN [Suspect]
     Route: 048
     Dates: start: 20080507
  6. ALDACTONE [Suspect]
     Indication: DRUG USE FOR UNKNOWN INDICATION
     Route: 048
     Dates: start: 20080427

REACTIONS (2)
  - INTERNATIONAL NORMALISED RATIO INCREASED [None]
  - PROTHROMBIN LEVEL DECREASED [None]
